FAERS Safety Report 7770840-X (Version None)
Quarter: 2011Q3

REPORT INFORMATION
  Report Type: 
  Country: None (occurrence: None)
  Receive Date: 20110922
  Receipt Date: 20110106
  Transmission Date: 20111222
  Serious: Yes (Hospitalization)
  Sender: FDA-Public Use
  Company Number: US-ASTRAZENECA-2011SE00945

PATIENT
  Age: 58 Year
  Sex: Female
  Weight: 51.7 kg

DRUGS (4)
  1. KLONOPIN [Concomitant]
  2. DOXEPIN [Concomitant]
  3. SEROQUEL XR [Suspect]
     Indication: BIPOLAR DISORDER
     Dosage: 1 OR 2 TABLETS DAILY
     Route: 048
     Dates: start: 20081001
  4. ADDERALL 5 [Concomitant]

REACTIONS (5)
  - SUICIDE ATTEMPT [None]
  - DRUG INTOLERANCE [None]
  - HALLUCINATION [None]
  - DYSKINESIA [None]
  - DRUG DOSE OMISSION [None]
